FAERS Safety Report 17821889 (Version 5)
Quarter: 2020Q4

REPORT INFORMATION
  Report Type: Report from Study
  Country: None (occurrence: CA)
  Receive Date: 20200525
  Receipt Date: 20201006
  Transmission Date: 20210113
  Serious: Yes (Hospitalization)
  Sender: FDA-Public Use
  Company Number: CA-ABBVIE-20K-028-3416130-00

PATIENT
  Age: 26 Year
  Sex: Female

DRUGS (3)
  1. PREDNISONE. [Concomitant]
     Active Substance: PREDNISONE
     Indication: CROHN^S DISEASE
     Route: 048
     Dates: start: 20200610, end: 2020
  2. HUMIRA [Suspect]
     Active Substance: ADALIMUMAB
     Route: 058
     Dates: start: 2020
  3. HUMIRA [Suspect]
     Active Substance: ADALIMUMAB
     Indication: CROHN^S DISEASE
     Route: 058
     Dates: start: 20200502, end: 2020

REACTIONS (21)
  - Wound secretion [Recovered/Resolved]
  - Immunodeficiency [Not Recovered/Not Resolved]
  - Impaired healing [Unknown]
  - Diarrhoea [Not Recovered/Not Resolved]
  - Arthralgia [Not Recovered/Not Resolved]
  - Abdominal pain [Unknown]
  - Drug ineffective [Recovering/Resolving]
  - Faeces soft [Unknown]
  - Fatigue [Not Recovered/Not Resolved]
  - Postoperative wound infection [Unknown]
  - Procedural pain [Not Recovered/Not Resolved]
  - Postoperative wound infection [Recovered/Resolved]
  - Calcium deficiency [Not Recovered/Not Resolved]
  - Frequent bowel movements [Recovering/Resolving]
  - Pyrexia [Unknown]
  - Post procedural complication [Unknown]
  - Wound secretion [Unknown]
  - Eating disorder [Unknown]
  - Abdominal pain [Recovering/Resolving]
  - Vomiting [Not Recovered/Not Resolved]
  - Purulence [Recovered/Resolved]

NARRATIVE: CASE EVENT DATE: 2020
